FAERS Safety Report 9829045 (Version 3)
Quarter: 2016Q1

REPORT INFORMATION
  Report Type: Report from Study
  Country: CA (occurrence: CA)
  Receive Date: 20140118
  Receipt Date: 20160219
  Transmission Date: 20160526
  Serious: Yes (Hospitalization, Other)
  Sender: FDA-Public Use
  Company Number: CA-ROCHE-1334322

PATIENT
  Sex: Female
  Weight: 71.7 kg

DRUGS (8)
  1. METHYLPREDNISOLONE. [Concomitant]
     Active Substance: METHYLPREDNISOLONE
     Route: 042
     Dates: start: 20090724
  2. TYLENOL EXTRA STRENGTH [Concomitant]
     Active Substance: ACETAMINOPHEN
  3. DIPHENHYDRAMINE HCL [Concomitant]
     Active Substance: DIPHENHYDRAMINE HYDROCHLORIDE
     Indication: PREMEDICATION
     Route: 048
     Dates: start: 20090724
  4. METHOTREXATE [Concomitant]
     Active Substance: METHOTREXATE
     Route: 065
     Dates: start: 1996, end: 1998
  5. NEXIUM [Concomitant]
     Active Substance: ESOMEPRAZOLE MAGNESIUM
     Dosage: EVEREY DAY
     Route: 048
  6. RITUXAN [Suspect]
     Active Substance: RITUXIMAB
     Indication: RHEUMATOID ARTHRITIS
     Dosage: RECEIVED RITUXIMAB INFUSION ON 23/AUG/2013, 24/FEB/2014
     Route: 042
     Dates: start: 2006, end: 20140825
  7. CELEBREX [Concomitant]
     Active Substance: CELECOXIB
     Route: 048
  8. ACETAMINOPHEN. [Concomitant]
     Active Substance: ACETAMINOPHEN
     Indication: PREMEDICATION
     Route: 048
     Dates: start: 20090724

REACTIONS (10)
  - Intervertebral disc protrusion [Unknown]
  - Drug effect decreased [Unknown]
  - Immunodeficiency [Unknown]
  - Vaginal infection [Recovered/Resolved with Sequelae]
  - Salpingitis [Recovered/Resolved with Sequelae]
  - Abdominal pain [Unknown]
  - Tubo-ovarian abscess [Unknown]
  - Pelvic inflammatory disease [Unknown]
  - Ovarian mass [Unknown]
  - Menstrual disorder [Unknown]

NARRATIVE: CASE EVENT DATE: 2012
